FAERS Safety Report 14461346 (Version 4)
Quarter: 2025Q4

REPORT INFORMATION
  Report Type: Report from Study
  Country: EU (occurrence: PF)
  Receive Date: 20180130
  Receipt Date: 20251127
  Transmission Date: 20260118
  Serious: Yes (Hospitalization, Other)
  Sender: TEVA
  Company Number: EU-ABBVIE-17K-062-2195245-00

PATIENT
  Sex: Female
  Weight: 70 kg

DRUGS (17)
  1. ALBUTEROL [Suspect]
     Active Substance: ALBUTEROL
     Indication: Product used for unknown indication
     Dosage: TIME INTERVAL: AS NECESSARY: BEFORE LEVOFLOXACIN INHALATION
     Route: 055
  2. LEVOTHYROXINE SODIUM [Suspect]
     Active Substance: LEVOTHYROXINE SODIUM
     Indication: Product used for unknown indication
     Dosage: L-THYROXIN
     Route: 065
  3. FLUTICASONE FUROATE\SALMETEROL XINAFOATE [Suspect]
     Active Substance: FLUTICASONE FUROATE\SALMETEROL XINAFOATE
     Indication: Product used for unknown indication
     Route: 055
     Dates: start: 20170715
  4. HUMIRA [Suspect]
     Active Substance: ADALIMUMAB
     Indication: Psoriasis
     Route: 058
     Dates: start: 20170629
  5. FLUTICASONE PROPIONATE\SALMETEROL XINAFOATE [Concomitant]
     Active Substance: FLUTICASONE PROPIONATE\SALMETEROL XINAFOATE
     Indication: Product used for unknown indication
     Dosage: 50/100 UG FOLLOWING DISCUSSION
     Route: 055
  6. HUMIRA [Suspect]
     Active Substance: ADALIMUMAB
     Indication: Product used for unknown indication
     Route: 058
     Dates: start: 2018, end: 20190218
  7. HUMIRA [Suspect]
     Active Substance: ADALIMUMAB
     Indication: Product used for unknown indication
     Route: 058
     Dates: start: 2019, end: 20190625
  8. LEVOTHYROXINE [Concomitant]
     Active Substance: LEVOTHYROXINE
     Indication: Product used for unknown indication
     Route: 065
  9. EMSER SOLE [Concomitant]
     Indication: Product used for unknown indication
     Dosage: AS REQUIRED 3 TIMES A DAY
     Route: 065
  10. ALBUTEROL [Concomitant]
     Active Substance: ALBUTEROL
     Indication: Product used for unknown indication
     Route: 055
  11. AMJEVITA [Suspect]
     Active Substance: ADALIMUMAB-ATTO
     Indication: Psoriatic arthropathy
     Route: 065
     Dates: start: 20190626
  12. AMJEVITA [Suspect]
     Active Substance: ADALIMUMAB-ATTO
     Indication: Psoriatic arthropathy
     Route: 065
  13. FLUTICASONE [Concomitant]
     Active Substance: FLUTICASONE
     Indication: Product used for unknown indication
     Dosage: 2 DF
     Route: 045
  14. FLUTICASONE PROPIONATE\SALMETEROL XINAFOATE [Concomitant]
     Active Substance: FLUTICASONE PROPIONATE\SALMETEROL XINAFOATE
     Indication: Product used for unknown indication
     Dosage: 2 OT
     Route: 065
  15. FLUTICASONE PROPIONATE\SALMETEROL XINAFOATE [Concomitant]
     Active Substance: FLUTICASONE PROPIONATE\SALMETEROL XINAFOATE
     Indication: Product used for unknown indication
     Route: 065
  16. FLUTICASONE [Concomitant]
     Active Substance: FLUTICASONE
     Indication: Product used for unknown indication
     Route: 045
  17. LEVOTHYROXINE SODIUM [Concomitant]
     Active Substance: LEVOTHYROXINE SODIUM
     Indication: Product used for unknown indication
     Route: 065

REACTIONS (56)
  - Pneumonia [Unknown]
  - Magnetic resonance imaging thoracic abnormal [Unknown]
  - Pulmonary fibrosis [Not Recovered/Not Resolved]
  - Immunodeficiency [Not Recovered/Not Resolved]
  - Lung disorder [Unknown]
  - Haemophilus infection [Recovering/Resolving]
  - Pneumonia [Unknown]
  - Haemophilus infection [Unknown]
  - Bronchial obstruction [Unknown]
  - Respiratory tract infection [Recovered/Resolved]
  - Inflammation [Unknown]
  - Haemoptysis [Unknown]
  - Haemoptysis [Unknown]
  - Tracheobronchitis [Unknown]
  - Hyperthyroidism [Unknown]
  - Asthma [Unknown]
  - Immunodeficiency [Unknown]
  - Chronic sinusitis [Unknown]
  - Pulmonary haemorrhage [Unknown]
  - Blood immunoglobulin E increased [Unknown]
  - Bronchiectasis [Unknown]
  - Pneumonia [Recovered/Resolved]
  - Dyspnoea [Unknown]
  - Bronchitis [Unknown]
  - Tracheobronchitis bacterial [Recovered/Resolved]
  - Hilar lymphadenopathy [Unknown]
  - Staphylococcal infection [Unknown]
  - Thyroid atrophy [Unknown]
  - Lung disorder [Not Recovered/Not Resolved]
  - Hiatus hernia [Unknown]
  - Dyspnoea [Unknown]
  - Hiatus hernia [Recovered/Resolved]
  - Osteomyelitis [Unknown]
  - Bronchiolitis [Unknown]
  - Breath sounds abnormal [Unknown]
  - Bronchitis bacterial [Unknown]
  - Increased upper airway secretion [Unknown]
  - Haemoptysis [Not Recovered/Not Resolved]
  - Pulmonary oedema [Unknown]
  - Pneumonia [Unknown]
  - Osteomyelitis [Recovered/Resolved]
  - Obstructive airways disorder [Unknown]
  - Tracheobronchitis [Unknown]
  - Mucosal haemorrhage [Unknown]
  - Pneumonia [Unknown]
  - Bronchial wall thickening [Unknown]
  - Inflammation [Unknown]
  - Breath sounds abnormal [Unknown]
  - Hyperthyroidism [Unknown]
  - Haemoptysis [Unknown]
  - Cystitis noninfective [Unknown]
  - Drug intolerance [Unknown]
  - Traumatic lung injury [Unknown]
  - Infection susceptibility increased [Unknown]
  - Chronic sinusitis [Unknown]
  - Conjunctivitis allergic [Unknown]

NARRATIVE: CASE EVENT DATE: 20170101
